FAERS Safety Report 9819361 (Version 1)
Quarter: 2014Q1

REPORT INFORMATION
  Report Type: Spontaneous
  Country: MX (occurrence: MX)
  Receive Date: 20140115
  Receipt Date: 20140115
  Transmission Date: 20141002
  Serious: Yes (Death)
  Sender: FDA-Public Use
  Company Number: MX-PFIZER INC-2014011440

PATIENT
  Age: 17 Day
  Sex: Male

DRUGS (1)
  1. VIAGRA [Suspect]
     Indication: CONGENITAL ARTERIAL MALFORMATION
     Dosage: 50 MG, UNK

REACTIONS (3)
  - Asphyxia [Fatal]
  - Brain injury [Fatal]
  - Off label use [Unknown]
